FAERS Safety Report 10406959 (Version 1)
Quarter: 2014Q3

REPORT INFORMATION
  Report Type: Spontaneous
  Country: CN (occurrence: None)
  Receive Date: 20140821
  Receipt Date: 20140821
  Transmission Date: 20150326
  Serious: Yes (Other)
  Sender: FDA-Public Use
  Company Number: VAL_03260_2014

PATIENT
  Age: 81 Year
  Sex: Male

DRUGS (1)
  1. CALCITRIOL (CALCITRIOL) (CALCITRIOL) [Suspect]
     Active Substance: CALCITRIOL
     Indication: OSTEOPOROSIS
     Dates: start: 20131001, end: 20131114

REACTIONS (5)
  - Dyskinesia [None]
  - Limb discomfort [None]
  - Gait disturbance [None]
  - Off label use [None]
  - Hypoaesthesia [None]

NARRATIVE: CASE EVENT DATE: 201311
